FAERS Safety Report 4564647-4 (Version None)
Quarter: 2005Q1

REPORT INFORMATION
  Report Type: 
  Country: None (occurrence: None)
  Receive Date: 20050126
  Receipt Date: 20050111
  Transmission Date: 20050727
  Serious: Yes (Other)
  Sender: FDA-Public Use
  Company Number: EWC041242007

PATIENT
  Age: 69 Year
  Sex: Male
  Weight: 75 kg

DRUGS (17)
  1. XIGRIS [Suspect]
     Indication: MULTI-ORGAN FAILURE
     Dosage: 24 UG/KG/HR
     Dates: start: 20041217, end: 20041218
  2. XIGRIS [Suspect]
     Indication: SEPSIS
     Dosage: 24 UG/KG/HR
     Dates: start: 20041217, end: 20041218
  3. ENOXAPARIN SODIUM [Concomitant]
  4. LINEZOLID [Concomitant]
  5. MEROPENEM [Concomitant]
  6. CIPROFLOXACIN HCL [Concomitant]
  7. VORICONAZOLE [Concomitant]
  8. FUROSEMIDE [Concomitant]
  9. MANNITOL [Concomitant]
  10. DOPAMINE HCL [Concomitant]
  11. NORADRENALINE [Concomitant]
  12. VITAMIN B-12 [Concomitant]
  13. FOLIC ACID [Concomitant]
  14. MORPHIC CL [Concomitant]
  15. MIDAZOLAM HCL [Concomitant]
  16. FENTANYL [Concomitant]
  17. FLECAINIDE ACETATE [Concomitant]

REACTIONS (10)
  - ACTIVATED PARTIAL THROMBOPLASTIN TIME PROLONGED [None]
  - BLOOD FIBRINOGEN INCREASED [None]
  - COAGULOPATHY [None]
  - HAEMATOCRIT DECREASED [None]
  - HAEMATURIA [None]
  - HAEMOGLOBIN DECREASED [None]
  - LEUKOCYTOSIS [None]
  - PETECHIAE [None]
  - PROTHROMBIN TIME PROLONGED [None]
  - THROMBOCYTOPENIA [None]
